FAERS Safety Report 8138759-2 (Version None)
Quarter: 2012Q1

REPORT INFORMATION
  Report Type: 
  Country: None (occurrence: None)
  Receive Date: 20120215
  Receipt Date: 20120210
  Transmission Date: 20120608
  Serious: Yes (Other)
  Sender: FDA-Public Use
  Company Number: JP-GLAXOSMITHKLINE-B0775030A

PATIENT
  Sex: Male

DRUGS (1)
  1. DUTASTERIDE [Suspect]
     Route: 048

REACTIONS (2)
  - PYREXIA [None]
  - RHABDOMYOLYSIS [None]
